FAERS Safety Report 4994417-4 (Version None)
Quarter: 2006Q1

REPORT INFORMATION
  Report Type: 
  Country: None (occurrence: None)
  Receive Date: 20060313
  Receipt Date: 20051128
  Transmission Date: 20060701
  Serious: No
  Sender: FDA-Public Use
  Company Number: 2005-BP-19267BP

PATIENT
  Age: 70 Year
  Sex: Male

DRUGS (5)
  1. SPIRIVA [Suspect]
     Indication: CHRONIC OBSTRUCTIVE PULMONARY DISEASE
     Dosage: 18 MCG (18 MCG) IH
     Route: 055
     Dates: start: 20050222, end: 20051019
  2. LIPITOR [Concomitant]
  3. XOLAIR (OMELIZUMAB) [Concomitant]
  4. ADVAIR (SERETIDE) [Concomitant]
  5. SINGULAIR [Concomitant]

REACTIONS (2)
  - FEELING JITTERY [None]
  - TACHYCARDIA [None]
